FAERS Safety Report 4863317-2 (Version None)
Quarter: 2005Q4

REPORT INFORMATION
  Report Type: 
  Country: None (occurrence: None)
  Receive Date: 20051222
  Receipt Date: 20051216
  Transmission Date: 20060501
  Serious: Yes (Other)
  Sender: FDA-Public Use
  Company Number: US-SOLVAY-00205004218

PATIENT
  Sex: Female

DRUGS (3)
  1. PROMETRIUM [Suspect]
     Indication: INFERTILITY
     Dosage: DAILY DOSE: 400 MILLIGRAM(S)
     Route: 048
     Dates: start: 20051102
  2. FOLLISTIM [Suspect]
     Indication: INFERTILITY
     Dosage: DAILY DOSE: 300 IU/KILOGRAM
     Route: 065
     Dates: start: 20051023, end: 20051028
  3. FOLLISTIM [Suspect]
     Dosage: DAILY DOSE: 450 IU/KILOGRAM
     Route: 065
     Dates: start: 20051029, end: 20051029

REACTIONS (1)
  - BENIGN HYDATIDIFORM MOLE [None]
